FAERS Safety Report 6314443-2 (Version None)
Quarter: 2009Q3

REPORT INFORMATION
  Report Type: 
  Country: None (occurrence: None)
  Receive Date: 20090817
  Receipt Date: 20090817
  Transmission Date: 20100115
  Serious: Yes (Disabling)
  Sender: FDA-Public Use
  Company Number: None

PATIENT
  Age: 53 Year
  Sex: Male
  Weight: 73.4827 kg

DRUGS (1)
  1. ZICAM NASAL GEL ZICAM LLC/MATRIXX INITIATIVES INC [Suspect]
     Indication: NASAL CONGESTION
     Dosage: ONE (1) SPRAY IN EACH NOSTRIL ONE (1) TIME ONLY NASAL
     Route: 045
     Dates: start: 20090612, end: 20090612

REACTIONS (5)
  - AGEUSIA [None]
  - ANOSMIA [None]
  - LACRIMATION INCREASED [None]
  - NASAL DISCOMFORT [None]
  - RHINORRHOEA [None]
